FAERS Safety Report 6197475-7 (Version None)
Quarter: 2009Q2

REPORT INFORMATION
  Report Type: 
  Country: None (occurrence: None)
  Receive Date: 20090521
  Receipt Date: 20090511
  Transmission Date: 20091009
  Serious: Yes (Death)
  Sender: FDA-Public Use
  Company Number: GB-JNJFOC-20090404203

PATIENT
  Age: 75 Year
  Sex: Female
  Weight: 57 kg

DRUGS (3)
  1. REMICADE [Suspect]
     Indication: RHEUMATOID ARTHRITIS
     Dosage: DOSE: ^171^ OR ^141^
     Route: 042
  2. METHOTREXATE [Concomitant]
  3. TRAMADOL HCL [Concomitant]

REACTIONS (6)
  - CARDIAC FAILURE [None]
  - CHRONIC OBSTRUCTIVE PULMONARY DISEASE [None]
  - HYPERTENSIVE HEART DISEASE [None]
  - PERITONITIS [None]
  - RECTAL PROLAPSE [None]
  - SMALL INTESTINAL OBSTRUCTION [None]
